FAERS Safety Report 11794674 (Version 1)
Quarter: 2015Q4

REPORT INFORMATION
  Report Type: Spontaneous
  Country: AT (occurrence: AT)
  Receive Date: 20151202
  Receipt Date: 20151202
  Transmission Date: 20160305
  Serious: Yes (Life-Threatening)
  Sender: FDA-Public Use
  Company Number: AT-PFIZER INC-2015405828

PATIENT
  Age: 70 Year
  Sex: Male
  Weight: 105 kg

DRUGS (6)
  1. DREISACARB [Concomitant]
     Active Substance: CALCIUM CARBONATE
  2. TRITTICO [Concomitant]
     Active Substance: TRAZODONE HYDROCHLORIDE
  3. SERTRALINE [Concomitant]
     Active Substance: SERTRALINE HYDROCHLORIDE
  4. ROCALTROL [Concomitant]
     Active Substance: CALCITRIOL
  5. TYGACIL [Suspect]
     Active Substance: TIGECYCLINE
     Indication: SKIN ULCER
     Dosage: 150 MG, 2X/DAY
     Route: 042
     Dates: start: 20151020, end: 20151101
  6. RENVELA [Concomitant]
     Active Substance: SEVELAMER CARBONATE

REACTIONS (1)
  - Coma hepatic [Unknown]

NARRATIVE: CASE EVENT DATE: 201511
